FAERS Safety Report 15455382 (Version 1)
Quarter: 2018Q4

REPORT INFORMATION
  Report Type: Other
  Country: IN (occurrence: IN)
  Receive Date: 20181002
  Receipt Date: 20181002
  Transmission Date: 20190204
  Serious: Yes (Hospitalization)
  Sender: FDA-Public Use
  Company Number: IN-LEADING PHARMA, LLC-2055573

PATIENT
  Age: 66 Year
  Sex: Male
  Weight: 122 kg

DRUGS (1)
  1. FUROSEMIDE TABLETS , 20 MG, 40 MG AND 80 MG [Suspect]
     Active Substance: FUROSEMIDE
     Route: 042

REACTIONS (2)
  - Hyperthermia [Recovered/Resolved]
  - Polyuria [None]
